FAERS Safety Report 6714974-7 (Version None)
Quarter: 2010Q2

REPORT INFORMATION
  Report Type: 
  Country: None (occurrence: None)
  Receive Date: 20100506
  Receipt Date: 20100506
  Transmission Date: 20101027
  Serious: No
  Sender: FDA-Public Use
  Company Number: None

PATIENT
  Sex: Female
  Weight: 13.6079 kg

DRUGS (1)
  1. TYLENOL COUGH AND RUNNY NOSE MCNEIL [Suspect]
     Dosage: 1 TEASPOON EVERY 4 HOURS PO AS NEEDED
     Route: 048
     Dates: start: 20100401, end: 20100427

REACTIONS (2)
  - ABDOMINAL PAIN UPPER [None]
  - PRODUCT QUALITY ISSUE [None]
